FAERS Safety Report 8220177-X (Version None)
Quarter: 2012Q1

REPORT INFORMATION
  Report Type: 
  Country: None (occurrence: None)
  Receive Date: 20120320
  Receipt Date: 20120309
  Transmission Date: 20120608
  Serious: Yes (Hospitalization, Other)
  Sender: FDA-Public Use
  Company Number: US-BAYER-2012-025958

PATIENT
  Sex: Female

DRUGS (1)
  1. YAZ [Suspect]
     Dosage: UNK
     Dates: start: 20070901

REACTIONS (4)
  - SCAR [None]
  - ILL-DEFINED DISORDER [None]
  - GALLBLADDER DISORDER [None]
  - PANCREATITIS [None]
